FAERS Safety Report 23763599 (Version 1)
Quarter: 2024Q2

REPORT INFORMATION
  Report Type: Spontaneous
  Country: US (occurrence: US)
  Receive Date: 20240419
  Receipt Date: 20240419
  Transmission Date: 20240716
  Serious: Yes (Other)
  Sender: FDA-Public Use
  Company Number: US-Stemline Therapeutics, Inc.-2024ST002299

PATIENT
  Age: 79 Year
  Sex: Female

DRUGS (2)
  1. ORSERDU [Suspect]
     Active Substance: ELACESTRANT
     Indication: Product used for unknown indication
     Route: 048
  2. LEVOFLOXACIN [Suspect]
     Active Substance: LEVOFLOXACIN
     Indication: Urinary tract infection

REACTIONS (15)
  - Serotonin syndrome [Unknown]
  - Tremor [Unknown]
  - Muscle twitching [Unknown]
  - Illness [Unknown]
  - Chest pain [Unknown]
  - Confusional state [Unknown]
  - Emotional distress [Unknown]
  - Anxiety [Unknown]
  - Feeling of body temperature change [Unknown]
  - Urinary tract infection [Unknown]
  - Nausea [Unknown]
  - Abdominal discomfort [Unknown]
  - Myalgia [Unknown]
  - Back pain [Unknown]
  - Pain in extremity [Unknown]
